FAERS Safety Report 4757326-1 (Version None)
Quarter: 2005Q3

REPORT INFORMATION
  Report Type: 
  Country: None (occurrence: None)
  Receive Date: 20050831
  Receipt Date: 20050831
  Transmission Date: 20060218
  Serious: Yes (Hospitalization)
  Sender: FDA-Public Use
  Company Number: None

PATIENT
  Age: 34 Year
  Sex: Female
  Weight: 58.9676 kg

DRUGS (1)
  1. ABORTION PILL [Suspect]
     Indication: PREGNANCY

REACTIONS (11)
  - ABDOMINAL PAIN [None]
  - BLOOD HUMAN CHORIONIC GONADOTROPIN POSITIVE [None]
  - COMPLICATIONS OF MATERNAL EXPOSURE TO THERAPEUTIC DRUGS [None]
  - CONDITION AGGRAVATED [None]
  - DIARRHOEA [None]
  - DYSSTASIA [None]
  - FALSE LABOUR [None]
  - FATIGUE [None]
  - MIDDLE INSOMNIA [None]
  - PAIN [None]
  - SCREAMING [None]
